FAERS Safety Report 6968673-7 (Version None)
Quarter: 2010Q3

REPORT INFORMATION
  Report Type: 
  Country: None (occurrence: None)
  Receive Date: 20100907
  Receipt Date: 20100823
  Transmission Date: 20110219
  Serious: Yes (Hospitalization)
  Sender: FDA-Public Use
  Company Number: JP-EISAI INC.-E2090-01296-SPO-JP

PATIENT
  Age: 81 Year
  Sex: Female

DRUGS (9)
  1. EXCEGRAN [Suspect]
     Route: 048
     Dates: start: 20100622, end: 20100709
  2. LEVOFLOXACIN [Concomitant]
  3. MADOPAR [Concomitant]
  4. PLETAL [Concomitant]
  5. SENNOSIDE [Concomitant]
  6. PRAMIPEXOLE DIHYDROCHLORIDE [Concomitant]
  7. MUCOSTA [Concomitant]
  8. MEVALOTIN [Concomitant]
  9. CINAL [Concomitant]

REACTIONS (1)
  - NEUTROPHIL COUNT DECREASED [None]
